FAERS Safety Report 7902706-6 (Version None)
Quarter: 2011Q4

REPORT INFORMATION
  Report Type: 
  Country: None (occurrence: None)
  Receive Date: 20111108
  Receipt Date: 20111026
  Transmission Date: 20120403
  Serious: Yes (Other)
  Sender: FDA-Public Use
  Company Number: US-ROCHE-1008865

PATIENT
  Age: 43 Year
  Sex: Female

DRUGS (3)
  1. BEVACIZUMAB [Suspect]
     Indication: LUNG ADENOCARCINOMA
  2. PEMETREXED [Concomitant]
  3. CARBOPLATIN [Concomitant]

REACTIONS (1)
  - OSTEONECROSIS [None]
